FAERS Safety Report 7213213-0 (Version None)
Quarter: 2010Q4

REPORT INFORMATION
  Report Type: 
  Country: None (occurrence: None)
  Receive Date: 20101227
  Receipt Date: 20101220
  Transmission Date: 20110411
  Serious: Yes (Death)
  Sender: FDA-Public Use
  Company Number: 08-211

PATIENT
  Age: 51 Year
  Sex: Male

DRUGS (1)
  1. FAZACLO ODT [Suspect]
     Dosage: 900 MG DAILY PO
     Route: 048
     Dates: start: 20080708, end: 20080729

REACTIONS (7)
  - ANAEMIA [None]
  - CARDIAC ARREST [None]
  - CHRONIC OBSTRUCTIVE PULMONARY DISEASE [None]
  - GASTROINTESTINAL HAEMORRHAGE [None]
  - PEPTIC ULCER [None]
  - PEPTIC ULCER HAEMORRHAGE [None]
  - TOBACCO ABUSE [None]
